FAERS Safety Report 16940864 (Version 1)
Quarter: 2019Q4

REPORT INFORMATION
  Report Type: Spontaneous
  Country: US (occurrence: US)
  Receive Date: 20190829
  Receipt Date: 20190829
  Transmission Date: 20200122
  Serious: No
  Sender: FDA-Public Use
  Company Number: None

PATIENT
  Age: 17 Year
  Sex: Male

DRUGS (1)
  1. NEXAVAR [Suspect]
     Active Substance: SORAFENIB
     Indication: INFLAMMATORY MYOFIBROBLASTIC TUMOUR
     Route: 048
     Dates: start: 201908

REACTIONS (1)
  - Rash [None]

NARRATIVE: CASE EVENT DATE: 201908
